FAERS Safety Report 13720415 (Version 3)
Quarter: 2017Q4

REPORT INFORMATION
  Report Type: Report from Study
  Country: US (occurrence: US)
  Receive Date: 20170706
  Receipt Date: 20171208
  Transmission Date: 20180320
  Serious: No
  Sender: FDA-Public Use
  Company Number: PHEH2017US020435

PATIENT
  Sex: Male
  Weight: 97.51 kg

DRUGS (6)
  1. COSENTYX [Suspect]
     Active Substance: SECUKINUMAB
     Dosage: 300 MG, QMO
     Route: 065
     Dates: start: 201702
  2. COSENTYX [Suspect]
     Active Substance: SECUKINUMAB
     Dosage: 300 MG, EVERY 2 WEEKS
     Route: 065
  3. COSENTYX [Suspect]
     Active Substance: SECUKINUMAB
     Indication: PRODUCT USED FOR UNKNOWN INDICATION
     Dosage: UNK
     Route: 065
     Dates: start: 201701
  4. COSENTYX [Suspect]
     Active Substance: SECUKINUMAB
     Dosage: 600 MG, UNK
     Route: 065
  5. METHOTREXATE. [Concomitant]
     Active Substance: METHOTREXATE
     Indication: PRODUCT USED FOR UNKNOWN INDICATION
     Dosage: 10 MG, QW
     Route: 065
  6. COSENTYX [Suspect]
     Active Substance: SECUKINUMAB
     Dosage: 300 MG, EVERY 4 WEEKS
     Route: 065

REACTIONS (2)
  - Drug ineffective [Recovering/Resolving]
  - Prescribed overdose [Unknown]
